FAERS Safety Report 17553246 (Version 2)
Quarter: 2020Q2

REPORT INFORMATION
  Report Type: Spontaneous
  Country: US (occurrence: US)
  Receive Date: 20200318
  Receipt Date: 20200527
  Transmission Date: 20200713
  Serious: Yes (Hospitalization, Other)
  Sender: FDA-Public Use
  Company Number: US-ASTRAZENECA-2020SE36893

PATIENT
  Age: 19954 Day
  Sex: Female
  Weight: 98 kg

DRUGS (21)
  1. METFORMIN [Concomitant]
     Active Substance: METFORMIN HYDROCHLORIDE
  2. HYDROCOD [Concomitant]
  3. DAPAGLIFLOZIN. [Concomitant]
     Active Substance: DAPAGLIFLOZIN
  4. NICOTINE. [Concomitant]
     Active Substance: NICOTINE
  5. LANTUS [Concomitant]
     Active Substance: INSULIN GLARGINE
  6. VANCOMYCIN [Concomitant]
     Active Substance: VANCOMYCIN
  7. AMOX [Concomitant]
     Active Substance: UNSPECIFIED INGREDIENT
  8. GLIPIZIDE. [Concomitant]
     Active Substance: GLIPIZIDE
  9. SERTRALINE [Concomitant]
     Active Substance: SERTRALINE HYDROCHLORIDE
  10. XIGDUO XR [Suspect]
     Active Substance: DAPAGLIFLOZIN PROPANEDIOL\METFORMIN HYDROCHLORIDE
     Indication: TYPE 2 DIABETES MELLITUS
     Dosage: 10-500 MG
     Route: 048
     Dates: start: 20151214
  11. LISINOPRIL. [Concomitant]
     Active Substance: LISINOPRIL
  12. ATORVASTATIN [Concomitant]
     Active Substance: ATORVASTATIN
  13. XIGDUO XR [Suspect]
     Active Substance: DAPAGLIFLOZIN PROPANEDIOL\METFORMIN HYDROCHLORIDE
     Indication: TYPE 2 DIABETES MELLITUS
     Route: 048
     Dates: start: 20150929
  14. LEVEMIR [Concomitant]
     Active Substance: INSULIN DETEMIR
  15. SODIUM CHLORIDE. [Concomitant]
     Active Substance: SODIUM CHLORIDE
  16. MENTHOL. [Concomitant]
     Active Substance: MENTHOL
  17. XIGDUO XR [Suspect]
     Active Substance: DAPAGLIFLOZIN PROPANEDIOL\METFORMIN HYDROCHLORIDE
     Indication: TYPE 2 DIABETES MELLITUS
     Route: 048
     Dates: start: 20150630, end: 201602
  18. CLINDAMYCIN. [Concomitant]
     Active Substance: CLINDAMYCIN
  19. NAPROXEN SODIUM. [Concomitant]
     Active Substance: NAPROXEN SODIUM
  20. ASPIRIN. [Concomitant]
     Active Substance: ASPIRIN
  21. ZOFRAN [Concomitant]
     Active Substance: ONDANSETRON HYDROCHLORIDE

REACTIONS (11)
  - Sepsis [Unknown]
  - Necrotising fasciitis [Unknown]
  - Perineal cellulitis [Unknown]
  - Abscess limb [Unknown]
  - Perineal abscess [Unknown]
  - Fournier^s gangrene [Unknown]
  - Leukocytosis [Unknown]
  - Cellulitis [Unknown]
  - Abscess [Unknown]
  - Vulval abscess [Unknown]
  - Perirectal abscess [Unknown]

NARRATIVE: CASE EVENT DATE: 20160228
